FAERS Safety Report 11834123 (Version 1)
Quarter: 2015Q4

REPORT INFORMATION
  Report Type: Report from Study
  Country: BR (occurrence: BR)
  Receive Date: 20151214
  Receipt Date: 20151214
  Transmission Date: 20160305
  Serious: Yes (Hospitalization)
  Sender: FDA-Public Use
  Company Number: PHHY2015BR162772

PATIENT
  Sex: Male
  Weight: 97 kg

DRUGS (2)
  1. SEEBRI BREEZHALER [Suspect]
     Active Substance: GLYCOPYRROLATE
     Indication: LUNG DISORDER
  2. SEEBRI BREEZHALER [Suspect]
     Active Substance: GLYCOPYRROLATE
     Indication: EMPHYSEMA
     Dosage: 50 UG, QD
     Route: 055

REACTIONS (4)
  - Femur fracture [Unknown]
  - Balance disorder [Unknown]
  - Cardiac disorder [Unknown]
  - Fall [Unknown]
